FAERS Safety Report 7685821-4 (Version None)
Quarter: 2011Q3

REPORT INFORMATION
  Report Type: 
  Country: None (occurrence: None)
  Receive Date: 20110816
  Receipt Date: 20110802
  Transmission Date: 20111222
  Serious: No
  Sender: FDA-Public Use
  Company Number: US-B.I. PHARMACEUTICALS,INC./RIDGEFIELD-2011-BP-19022BP

PATIENT
  Sex: Male

DRUGS (3)
  1. DILTIAZEM [Concomitant]
     Indication: HYPERTENSION
     Route: 048
  2. LISINOPRIL [Concomitant]
     Indication: HYPERTENSION
     Route: 048
  3. PRADAXA [Suspect]
     Indication: ATRIAL FLUTTER
     Dosage: 300 MG
     Route: 048
     Dates: start: 20110401

REACTIONS (2)
  - ABDOMINAL DISCOMFORT [None]
  - DYSPNOEA [None]
